FAERS Safety Report 15280035 (Version 2)
Quarter: 2018Q3

REPORT INFORMATION
  Report Type: Spontaneous
  Country: US (occurrence: US)
  Receive Date: 20180815
  Receipt Date: 20180924
  Transmission Date: 20181010
  Serious: Yes (Other)
  Sender: FDA-Public Use
  Company Number: US-SA-2018SA222080

PATIENT
  Age: 59 Year
  Sex: Female

DRUGS (3)
  1. BENADRYL [Concomitant]
     Active Substance: DIPHENHYDRAMINE HYDROCHLORIDE
     Indication: PREMEDICATION
     Dosage: 50 MG
     Route: 048
     Dates: start: 20180808
  2. FABRAZYME [Suspect]
     Active Substance: AGALSIDASE BETA
     Dosage: 1.11 MG/KG, UNK
     Route: 041
     Dates: start: 20180808
  3. FABRAZYME [Suspect]
     Active Substance: AGALSIDASE BETA
     Dosage: 66 MG
     Route: 041
     Dates: start: 20180905

REACTIONS (1)
  - Anaphylactic reaction [Recovered/Resolved]
